FAERS Safety Report 7281900-4 (Version None)
Quarter: 2011Q1

REPORT INFORMATION
  Report Type: 
  Country: None (occurrence: None)
  Receive Date: 20110208
  Receipt Date: 20110203
  Transmission Date: 20110831
  Serious: Yes (Other)
  Sender: FDA-Public Use
  Company Number: US-AMGEN-USASP2010011994

PATIENT
  Age: 44 Year
  Sex: Female
  Weight: 100.68 kg

DRUGS (5)
  1. CORTICOSTEROIDS [Concomitant]
     Indication: IDIOPATHIC THROMBOCYTOPENIC PURPURA
  2. NPLATE [Suspect]
  3. PLAQUENIL [Concomitant]
     Indication: PRODUCT USED FOR UNKNOWN INDICATION
  4. NPLATE [Suspect]
     Indication: IDIOPATHIC THROMBOCYTOPENIC PURPURA
     Dosage: .25 A?G/KG, QWK
     Route: 058
     Dates: start: 20090813
  5. XANAX [Concomitant]
     Dosage: UNK

REACTIONS (1)
  - THROMBOSIS [None]
